FAERS Safety Report 6490999-4 (Version None)
Quarter: 2009Q4

REPORT INFORMATION
  Report Type: 
  Country: None (occurrence: None)
  Receive Date: 20091211
  Receipt Date: 20091207
  Transmission Date: 20100525
  Serious: Yes (Other)
  Sender: FDA-Public Use
  Company Number: ES-ROCHE-673081

PATIENT
  Sex: Female
  Weight: 64 kg

DRUGS (12)
  1. TRASTUZUMAB [Suspect]
     Indication: BREAST CANCER
     Dosage: CYCLIC
     Route: 042
     Dates: start: 20070913
  2. TRASTUZUMAB [Interacting]
     Dosage: CYCLIC
     Route: 042
     Dates: start: 20080410
  3. SUNITINIB MALATE [Interacting]
     Indication: BREAST CANCER
     Route: 048
     Dates: start: 20070913, end: 20071205
  4. SUNITINIB MALATE [Interacting]
     Route: 048
     Dates: start: 20071219, end: 20080227
  5. SUNITINIB MALATE [Interacting]
     Route: 048
     Dates: start: 20080410
  6. ACTONEL [Concomitant]
  7. IDEOS [Concomitant]
  8. OMEPRAZOLE [Concomitant]
  9. SERTRALINE HCL [Concomitant]
  10. HYGROTON [Concomitant]
  11. LEXATIN [Concomitant]
  12. LEVOTHROID [Concomitant]
     Dates: start: 20080130

REACTIONS (2)
  - DRUG INTERACTION [None]
  - VENTRICULAR DYSFUNCTION [None]
